FAERS Safety Report 16850174 (Version 4)
Quarter: 2019Q4

REPORT INFORMATION
  Report Type: Spontaneous
  Country: PT (occurrence: PT)
  Receive Date: 20190925
  Receipt Date: 20191126
  Transmission Date: 20200122
  Serious: Yes (Hospitalization)
  Sender: FDA-Public Use
  Company Number: PHHY2019PT221354

PATIENT
  Age: 18 Year
  Sex: Female

DRUGS (1)
  1. PARACETAMOL [Suspect]
     Active Substance: ACETAMINOPHEN
     Indication: PAIN
     Dosage: 10 G, QD
     Route: 065

REACTIONS (10)
  - Hyperlactacidaemia [Recovered/Resolved]
  - Overdose [Recovered/Resolved]
  - Confusional state [Recovered/Resolved]
  - Tachypnoea [Recovered/Resolved]
  - Abdominal pain [Recovered/Resolved]
  - Acute hepatic failure [Recovered/Resolved]
  - Abdominal pain upper [Recovered/Resolved]
  - Sinus tachycardia [Recovered/Resolved]
  - Hyperpipecolic acidaemia [Recovered/Resolved]
  - Vomiting [Recovered/Resolved]
